FAERS Safety Report 7583867-8 (Version None)
Quarter: 2011Q2

REPORT INFORMATION
  Report Type: 
  Country: None (occurrence: None)
  Receive Date: 20110531
  Receipt Date: 20110106
  Transmission Date: 20111010
  Serious: Yes (Other)
  Sender: FDA-Public Use
  Company Number: 240916

PATIENT
  Age: 56 Year
  Sex: Female
  Weight: 57.6 kg

DRUGS (21)
  1. ACTIVELLA [Suspect]
     Indication: MENOPAUSAL SYMPTOMS
     Dosage: 1 TAB, ORAL
     Route: 048
     Dates: start: 20020916, end: 20030511
  2. ACTIVELLA [Suspect]
     Indication: PROPHYLAXIS
     Dosage: 1 TAB, ORAL
     Route: 048
     Dates: start: 20020916, end: 20030511
  3. ACTIVELLA [Suspect]
     Indication: OSTEOPOROSIS PROPHYLAXIS
     Dosage: 1 TAB, ORAL
     Route: 048
     Dates: start: 20020916, end: 20030511
  4. PREMARIN [Suspect]
     Indication: PROPHYLAXIS
     Dosage: 0.625 MG
     Dates: start: 19960101, end: 19970101
  5. PREMARIN [Suspect]
     Indication: MENOPAUSAL SYMPTOMS
     Dosage: 0.625 MG
     Dates: start: 19960101, end: 19970101
  6. PREMARIN [Suspect]
     Indication: OSTEOPOROSIS PROPHYLAXIS
     Dosage: 0.625 MG
     Dates: start: 19960101, end: 19970101
  7. CELEBREX [Concomitant]
  8. AMERGE [Concomitant]
  9. LEVOTHYROXINE SODIUM [Concomitant]
  10. PREMPRO [Suspect]
     Indication: PROPHYLAXIS
     Dosage: 0.625 MG/2.5 MG
     Dates: start: 19970101, end: 20020801
  11. PREMPRO [Suspect]
     Indication: OSTEOPOROSIS PROPHYLAXIS
     Dosage: 0.625 MG/2.5 MG
     Dates: start: 19970101, end: 20020801
  12. PREMPRO [Suspect]
     Indication: MENOPAUSAL SYMPTOMS
     Dosage: 0.625 MG/2.5 MG
     Dates: start: 19970101, end: 20020801
  13. PROVERA [Suspect]
     Indication: OSTEOPOROSIS PROPHYLAXIS
     Dosage: 2.5 MG
     Dates: start: 19960101, end: 19970101
  14. PROVERA [Suspect]
     Indication: PROPHYLAXIS
     Dosage: 2.5 MG
     Dates: start: 19960101, end: 19970101
  15. PROVERA [Suspect]
     Indication: MENOPAUSAL SYMPTOMS
     Dosage: 2.5 MG
     Dates: start: 19960101, end: 19970101
  16. ANAPROX [Concomitant]
  17. PROZAC [Concomitant]
  18. AMITRIPTYLINE HCL [Concomitant]
  19. IMITREX /01044801/ (SUMATRIPTAN) [Concomitant]
  20. PROGESTERONE [Concomitant]
  21. FOSAMAX [Concomitant]

REACTIONS (2)
  - BREAST CANCER [None]
  - BREAST CANCER IN SITU [None]
